FAERS Safety Report 4376016-0 (Version None)
Quarter: 2004Q2

REPORT INFORMATION
  Report Type: 
  Country: None (occurrence: None)
  Receive Date: 20040607
  Receipt Date: 20040524
  Transmission Date: 20050107
  Serious: Yes (Hospitalization)
  Sender: FDA-Public Use
  Company Number: 234099

PATIENT
  Age: 53 Year
  Sex: Male
  Weight: 55 kg

DRUGS (1)
  1. NOVONORM(REPAGLINIDE) TABLET, 1.0MG [Suspect]
     Indication: DIABETES MELLITUS NON-INSULIN-DEPENDENT
     Dosage: 3 TAB, QD, PER ORAL
     Route: 048
     Dates: start: 20020701

REACTIONS (2)
  - INFLAMMATION [None]
  - MUSCULOSKELETAL PAIN [None]
